FAERS Safety Report 5196694-6 (Version None)
Quarter: 2006Q4

REPORT INFORMATION
  Report Type: 
  Country: None (occurrence: None)
  Receive Date: 20061227
  Receipt Date: 20061211
  Transmission Date: 20070319
  Serious: Yes (Hospitalization, Other)
  Sender: FDA-Public Use
  Company Number: 2006142148

PATIENT
  Sex: Male
  Weight: 156.491 kg

DRUGS (8)
  1. NEURONTIN [Suspect]
     Indication: DIABETIC NEUROPATHY
     Dates: end: 20060101
  2. LYRICA [Suspect]
     Indication: DIABETIC NEUROPATHY
     Dosage: 150 MG (50 MG, 3 OR 4 TIMES A DAY)
     Dates: start: 20060101
  3. SPIRONOLACTONE [Suspect]
     Indication: FLUID RETENTION
     Dates: start: 20060101, end: 20060101
  4. HYZAAR [Concomitant]
  5. FUROSEMIDE [Concomitant]
  6. METOLAZONE [Concomitant]
  7. ZOCOR [Concomitant]
  8. POTASSIUM (POTASSIUM) [Concomitant]

REACTIONS (14)
  - BREAST PAIN [None]
  - CELLULITIS [None]
  - DISEASE RECURRENCE [None]
  - DRUG DOSE OMISSION [None]
  - DRUG EFFECT DECREASED [None]
  - ENDODONTIC PROCEDURE [None]
  - FLUID RETENTION [None]
  - GINGIVITIS [None]
  - NERVE COMPRESSION [None]
  - PERIPHERAL VASCULAR DISORDER [None]
  - SINUSITIS [None]
  - SKIN ULCER [None]
  - TREATMENT NONCOMPLIANCE [None]
  - WEIGHT INCREASED [None]
